FAERS Safety Report 26217604 (Version 1)
Quarter: 2025Q4

REPORT INFORMATION
  Report Type: Spontaneous
  Country: US (occurrence: US)
  Receive Date: 20251231
  Receipt Date: 20251231
  Transmission Date: 20260118
  Serious: Yes (Other)
  Sender: BAYER HEALTHCARE LLC
  Company Number: US-BAYER-2025A170051

PATIENT
  Age: 4 Decade
  Sex: Female

DRUGS (4)
  1. ASPIRIN [Suspect]
     Active Substance: ASPIRIN
     Indication: Hypertension
     Dosage: LOW DOSE ASPIRIN
  2. NIFEDIPINE [Concomitant]
     Active Substance: NIFEDIPINE
  3. METHYLPREDNISOLONE [Concomitant]
     Active Substance: METHYLPREDNISOLONE
  4. HYDROXYCHLOROQUINE [Concomitant]
     Active Substance: HYDROXYCHLOROQUINE

REACTIONS (5)
  - Foetal growth restriction [None]
  - Haemoperitoneum [None]
  - Haemoglobin decreased [None]
  - Premature delivery [None]
  - Maternal exposure during pregnancy [None]
